FAERS Safety Report 8227925-3 (Version None)
Quarter: 2012Q1

REPORT INFORMATION
  Report Type: 
  Country: None (occurrence: None)
  Receive Date: 20120322
  Receipt Date: 20120314
  Transmission Date: 20120608
  Serious: Yes (Death, Hospitalization)
  Sender: FDA-Public Use
  Company Number: FI-SANOFI-AVENTIS-2012SA003626

PATIENT
  Age: 66 Year
  Sex: Male
  Weight: 71 kg

DRUGS (3)
  1. DOCETAXEL [Suspect]
     Route: 042
     Dates: start: 20111109, end: 20111109
  2. PREDNISONE TAB [Suspect]
     Route: 048
     Dates: start: 20111109, end: 20120115
  3. DOCETAXEL [Suspect]
     Route: 042
     Dates: start: 20120112, end: 20120112

REACTIONS (1)
  - PYREXIA [None]
